FAERS Safety Report 7778250-6 (Version None)
Quarter: 2011Q3

REPORT INFORMATION
  Report Type: 
  Country: None (occurrence: None)
  Receive Date: 20110926
  Receipt Date: 20110913
  Transmission Date: 20111222
  Serious: Yes (Other)
  Sender: FDA-Public Use
  Company Number: NL-JNJFOC-20110906580

PATIENT
  Sex: Female

DRUGS (2)
  1. LISTERINE ORIGINAL [Suspect]
     Indication: PRODUCT USED FOR UNKNOWN INDICATION
     Route: 050
  2. LISTERINE ORIGINAL [Suspect]
     Route: 050

REACTIONS (2)
  - APPLICATION SITE ULCER [None]
  - THROMBOSIS [None]
